FAERS Safety Report 7672836-5 (Version None)
Quarter: 2011Q3

REPORT INFORMATION
  Report Type: 
  Country: None (occurrence: None)
  Receive Date: 20110809
  Receipt Date: 20110802
  Transmission Date: 20111222
  Serious: Yes (Hospitalization, Other)
  Sender: FDA-Public Use
  Company Number: US-BAYER-2010-002824

PATIENT
  Age: 34 Year
  Sex: Female
  Weight: 86.168 kg

DRUGS (13)
  1. HERBAL PRODUCTS (NOS) [Concomitant]
     Dosage: UNK
     Dates: start: 20080901
  2. PERCOCET [Concomitant]
     Route: 048
  3. YAZ [Suspect]
     Indication: ACNE
     Dosage: UNK
     Route: 048
     Dates: start: 20070101, end: 20081016
  4. METHOCARBAMOL [Concomitant]
     Dosage: 650 MG, QID
     Route: 048
  5. ASCORBIC ACID [Concomitant]
     Dosage: UNK
     Dates: start: 19980101
  6. MOTRIN [Concomitant]
     Dosage: UNK UNK, PRN
     Route: 048
  7. ADVIL LIQUI-GELS [Concomitant]
     Dosage: UNK UNK, PRN
     Route: 048
  8. CELEBREX [Concomitant]
     Dosage: 200 MG, BID
     Route: 048
  9. LEXAPRO [Concomitant]
     Dosage: 10 MG, QD
     Route: 048
  10. YAZ [Suspect]
     Indication: PREMENSTRUAL SYNDROME
  11. CEPHALEXIN [Concomitant]
     Dosage: 500 MG, QID
     Route: 048
  12. YASMIN [Suspect]
     Indication: ACNE
     Dosage: UNK
     Dates: start: 20020101, end: 20070101
  13. YASMIN [Suspect]
     Indication: PREMENSTRUAL SYNDROME

REACTIONS (5)
  - MENTAL DISORDER [None]
  - PULMONARY EMBOLISM [None]
  - DYSPNOEA [None]
  - CHEST PAIN [None]
  - ATELECTASIS [None]
